FAERS Safety Report 17165949 (Version 4)
Quarter: 2020Q4

REPORT INFORMATION
  Report Type: Spontaneous
  Country: DE (occurrence: DE)
  Receive Date: 20191217
  Receipt Date: 20201214
  Transmission Date: 20210113
  Serious: Yes (Hospitalization)
  Sender: FDA-Public Use
  Company Number: DE-ALLERGAN-1951405US

PATIENT
  Sex: Male

DRUGS (17)
  1. CARIPRAZINE HCL - BP [Suspect]
     Active Substance: CARIPRAZINE HYDROCHLORIDE
     Indication: PSYCHOTIC SYMPTOM
     Dosage: 6 MG, QD
     Route: 065
     Dates: start: 20190221, end: 20190328
  2. HALDOL [Concomitant]
     Active Substance: HALOPERIDOL
     Dosage: 8 MG, QD
     Route: 065
     Dates: start: 20190118, end: 20190204
  3. CARIPRAZINE HCL - BP [Suspect]
     Active Substance: CARIPRAZINE HYDROCHLORIDE
     Indication: DEPRESSION
     Dosage: 3 MG, QD
     Route: 065
     Dates: start: 20190207, end: 20190213
  4. DIAZEPAM. [Concomitant]
     Active Substance: DIAZEPAM
     Dosage: 2.5 MG, QD
     Route: 065
     Dates: start: 20190221, end: 20190227
  5. HALDOL [Concomitant]
     Active Substance: HALOPERIDOL
     Dosage: 15 MG, QD
     Route: 065
     Dates: start: 20190208, end: 20190318
  6. HALDOL [Concomitant]
     Active Substance: HALOPERIDOL
     Dosage: 10 MG, QD
     Route: 065
     Dates: start: 20190205, end: 20190207
  7. CARIPRAZINE HCL - BP [Suspect]
     Active Substance: CARIPRAZINE HYDROCHLORIDE
     Dosage: 1.5 MG, QD
     Route: 065
     Dates: start: 20190201, end: 20190206
  8. ASPIRIN. [Concomitant]
     Active Substance: ASPIRIN
     Dosage: 100 MG, QD
  9. CARIPRAZINE HCL - BP [Suspect]
     Active Substance: CARIPRAZINE HYDROCHLORIDE
     Indication: SCHIZOPHRENIA
     Dosage: 4.5 MG, QD
     Route: 065
     Dates: start: 20190214, end: 20190220
  10. DIAZEPAM. [Concomitant]
     Active Substance: DIAZEPAM
     Indication: SCHIZOPHRENIA
     Dosage: 5 MG, QD
     Route: 065
     Dates: start: 20190319
  11. DIAZEPAM. [Concomitant]
     Active Substance: DIAZEPAM
     Dosage: 7.5 MG, QD
     Route: 065
     Dates: start: 20190306, end: 20190318
  12. DIAZEPAM. [Concomitant]
     Active Substance: DIAZEPAM
     Dosage: 10 MG, QD
     Route: 065
     Dates: start: 20190208, end: 20190217
  13. HALDOL [Concomitant]
     Active Substance: HALOPERIDOL
     Indication: SCHIZOPHRENIA
     Dosage: 12 MG, QD
     Route: 065
     Dates: start: 20190319
  14. PIPAMPERONE [Concomitant]
     Active Substance: PIPAMPERONE
     Indication: SLEEP DISORDER
     Dosage: 40 MG, QD
     Route: 065
     Dates: start: 20190204
  15. DIAZEPAM. [Concomitant]
     Active Substance: DIAZEPAM
     Dosage: 5 MG, QD
     Route: 065
     Dates: start: 20190304, end: 20190305
  16. DIAZEPAM. [Concomitant]
     Active Substance: DIAZEPAM
     Dosage: 5 MG, QD
     Route: 065
     Dates: start: 20190218, end: 20190220
  17. L-THYROXIN [Concomitant]
     Active Substance: LEVOTHYROXINE SODIUM
     Dosage: 75 ?G, QD
     Route: 065

REACTIONS (6)
  - Aggression [Unknown]
  - Psychotic symptom [Recovering/Resolving]
  - Sexual abuse [Recovered/Resolved]
  - Hypersexuality [Recovered/Resolved]
  - Electrocardiogram QT prolonged [Unknown]
  - Treatment noncompliance [Unknown]

NARRATIVE: CASE EVENT DATE: 20190327
